FAERS Safety Report 4682856-0 (Version None)
Quarter: 2005Q2

REPORT INFORMATION
  Report Type: 
  Country: None (occurrence: None)
  Receive Date: 20050606
  Receipt Date: 20050502
  Transmission Date: 20051028
  Serious: Yes (Death, Life-Threatening, Other)
  Sender: FDA-Public Use
  Company Number: FR-BRISTOL-MYERS SQUIBB COMPANY-12954269

PATIENT
  Age: 83 Year
  Sex: Female

DRUGS (14)
  1. COUMADIN [Suspect]
     Route: 048
     Dates: end: 20050331
  2. MINISINTROM [Suspect]
     Dates: start: 20050401, end: 20050402
  3. ZOLOFT [Suspect]
     Dates: start: 20050331, end: 20050402
  4. IXPRIM [Concomitant]
     Dates: end: 20050402
  5. NOVATREX [Concomitant]
     Dates: end: 20050402
  6. FOSAMAX [Concomitant]
     Dates: end: 20050402
  7. CACIT D3 [Concomitant]
     Dates: end: 20050402
  8. HEMIGOXINE NATIVELLE [Concomitant]
     Dates: end: 20050402
  9. SOLUPRED [Concomitant]
  10. TEMESTA [Concomitant]
     Dates: end: 20050402
  11. ENDOTELON [Concomitant]
     Dates: end: 20050402
  12. MOPRAL [Concomitant]
  13. MEPRONIZINE [Concomitant]
     Dates: end: 20050402
  14. LUDIOMIL [Concomitant]
     Dates: end: 20050331

REACTIONS (5)
  - BACK PAIN [None]
  - DEATH [None]
  - GENERAL PHYSICAL HEALTH DETERIORATION [None]
  - GRAND MAL CONVULSION [None]
  - PROTHROMBIN LEVEL DECREASED [None]
